FAERS Safety Report 9456181 (Version 2)
Quarter: 2013Q3

REPORT INFORMATION
  Report Type: Spontaneous
  Country: JP (occurrence: None)
  Receive Date: 20130808
  Receipt Date: 20130911
  Transmission Date: 20140515
  Serious: Yes (Other)
  Sender: FDA-Public Use
  Company Number: JP-20130069

PATIENT
  Age: 87 Year
  Sex: Female

DRUGS (1)
  1. LIPIDOL [Suspect]
     Indication: THERAPEUTIC EMBOLISATION
     Route: 013
     Dates: start: 20080121, end: 20080121

REACTIONS (4)
  - Cholangitis [None]
  - Off label use [None]
  - Tumour necrosis [None]
  - Bile duct obstruction [None]
